FAERS Safety Report 5795624-3 (Version None)
Quarter: 2008Q2

REPORT INFORMATION
  Report Type: 
  Country: None (occurrence: None)
  Receive Date: 20080630
  Receipt Date: 20080620
  Transmission Date: 20081010
  Serious: Yes (Hospitalization)
  Sender: FDA-Public Use
  Company Number: JP-MERCK-0806USA07752

PATIENT
  Age: 30 Year
  Sex: Female

DRUGS (2)
  1. PRIMAXIN [Suspect]
     Indication: PNEUMONIA
     Route: 042
     Dates: start: 20080619
  2. GENINAX [Suspect]
     Indication: PHARYNGITIS
     Route: 048

REACTIONS (3)
  - CONVULSION [None]
  - RESPIRATORY ARREST [None]
  - RESTLESSNESS [None]
